FAERS Safety Report 9916148 (Version 1)
Quarter: 2014Q1

REPORT INFORMATION
  Report Type: Spontaneous
  Country: US (occurrence: None)
  Receive Date: 20140220
  Receipt Date: 20140220
  Transmission Date: 20141002
  Serious: Yes (Other)
  Sender: FDA-Public Use
  Company Number: None

PATIENT
  Age: 59 Year
  Sex: Female
  Weight: 50.8 kg

DRUGS (3)
  1. VELCADE [Suspect]
     Indication: PLASMA CELL MYELOMA
     Dates: start: 201301
  2. REVLIMID CELGENE [Suspect]
     Indication: PLASMA CELL MYELOMA
  3. DEXAMETHASONE [Concomitant]

REACTIONS (5)
  - Neuropathy peripheral [None]
  - Dizziness [None]
  - Asthenia [None]
  - Dysstasia [None]
  - Gait disturbance [None]
